FAERS Safety Report 4354587-8 (Version None)
Quarter: 2004Q2

REPORT INFORMATION
  Report Type: 
  Country: None (occurrence: None)
  Receive Date: 20040506
  Receipt Date: 20040506
  Transmission Date: 20050107
  Serious: No
  Sender: FDA-Public Use
  Company Number: None

PATIENT
  Sex: Male
  Weight: 96.1626 kg

DRUGS (4)
  1. FLUVASTATIN 40MG [Suspect]
     Indication: HYPERLIPIDAEMIA
     Dosage: 40MG DAILY ORAL
     Route: 048
     Dates: start: 20040108, end: 20040205
  2. NIACIN [Concomitant]
  3. METOPROLOL TARTRATE [Concomitant]
  4. METHOCARBAMOL [Concomitant]

REACTIONS (3)
  - BLOOD CREATINE PHOSPHOKINASE INCREASED [None]
  - MYALGIA [None]
  - TREATMENT NONCOMPLIANCE [None]
